FAERS Safety Report 4317148-2 (Version None)
Quarter: 2004Q1

REPORT INFORMATION
  Report Type: 
  Country: None (occurrence: None)
  Receive Date: 20040312
  Receipt Date: 20040227
  Transmission Date: 20041129
  Serious: Yes (Hospitalization)
  Sender: FDA-Public Use
  Company Number: 2004001084

PATIENT
  Age: 64 Year
  Sex: Male

DRUGS (3)
  1. LOPID [Suspect]
     Indication: BLOOD TRIGLYCERIDES INCREASED
     Dosage: 1200 MG (BID), ORAL
     Route: 048
     Dates: start: 19970526, end: 20021213
  2. LOPID [Suspect]
     Indication: HYPERCHOLESTEROLAEMIA
     Dosage: 1200 MG (BID), ORAL
     Route: 048
     Dates: start: 19970526, end: 20021213
  3. ACETYLSALICYLIC ACID SRT [Concomitant]

REACTIONS (4)
  - BILE DUCT STONE [None]
  - CHOLECYSTITIS [None]
  - CHOLELITHIASIS [None]
  - PANCREATITIS [None]
